FAERS Safety Report 13252576 (Version 1)
Quarter: 2017Q1

REPORT INFORMATION
  Report Type: Spontaneous
  Country: KP (occurrence: KP)
  Receive Date: 20170220
  Receipt Date: 20170220
  Transmission Date: 20170428
  Serious: Yes (Death, Other)
  Sender: FDA-Public Use
  Company Number: KP-CORDEN PHARMA LATINA S.P.A.-KP-2017COR000019

PATIENT
  Age: 45 Year
  Sex: Female

DRUGS (4)
  1. PREDNISOLONE. [Suspect]
     Active Substance: PREDNISOLONE
     Indication: PERIPHERAL T-CELL LYMPHOMA UNSPECIFIED
     Dosage: 60 MG/M2, ON DAYS 1-5, REPEATED EVERY 3 WEEKS
     Route: 048
  2. ETOPOSIDE. [Suspect]
     Active Substance: ETOPOSIDE
     Indication: PERIPHERAL T-CELL LYMPHOMA UNSPECIFIED
     Dosage: 100 MG/M2, ON DAYS 1-3, REPEATED EVERY 3 WEEKS
     Route: 042
  3. METHOTREXATE. [Suspect]
     Active Substance: METHOTREXATE
     Indication: PERIPHERAL T-CELL LYMPHOMA UNSPECIFIED
     Dosage: 30 MG/M2, ON DAYS 3 AND 10, REPEATED EVERY 3 WEEKS
     Route: 042
  4. IFOSFAMIDE AND MESNA [Suspect]
     Active Substance: IFOSFAMIDE\MESNA
     Indication: PERIPHERAL T-CELL LYMPHOMA UNSPECIFIED
     Dosage: 1500 MG/M2, ON DAYS 1-3, REPEATED EVERY 3 WEEKS
     Route: 042

REACTIONS (3)
  - Sepsis [Fatal]
  - Pneumonia [Fatal]
  - Toxicity to various agents [Fatal]
